FAERS Safety Report 5292371-1 (Version None)
Quarter: 2007Q2

REPORT INFORMATION
  Report Type: 
  Country: None (occurrence: None)
  Receive Date: 20070410
  Receipt Date: 20070402
  Transmission Date: 20071010
  Serious: Yes (Hospitalization, Other)
  Sender: FDA-Public Use
  Company Number: US-PFIZER INC-2006117506

PATIENT
  Age: 57 Year
  Sex: Female
  Weight: 74.4 kg

DRUGS (4)
  1. GEODON [Suspect]
     Indication: MAJOR DEPRESSION
     Route: 048
     Dates: start: 20060904, end: 20060904
  2. GEODON [Suspect]
     Indication: GENERALISED ANXIETY DISORDER
  3. SOMA [Concomitant]
  4. ZOLOFT [Concomitant]
     Dosage: DAILY DOSE:100MG

REACTIONS (7)
  - ELECTROCARDIOGRAM ABNORMAL [None]
  - ELECTROCARDIOGRAM QT CORRECTED INTERVAL PROLONGED [None]
  - HYPOTENSION [None]
  - INTENTIONAL OVERDOSE [None]
  - RED BLOOD CELL COUNT INCREASED [None]
  - RESPIRATION ABNORMAL [None]
  - SUICIDE ATTEMPT [None]
